FAERS Safety Report 6381547-8 (Version None)
Quarter: 2009Q3

REPORT INFORMATION
  Report Type: 
  Country: None (occurrence: None)
  Receive Date: 20090925
  Receipt Date: 20090915
  Transmission Date: 20100115
  Serious: Yes (Hospitalization)
  Sender: FDA-Public Use
  Company Number: WAES 0909USA02867

PATIENT
  Age: 78 Year
  Sex: Female

DRUGS (10)
  1. ZETIA [Suspect]
     Indication: HYPERCHOLESTEROLAEMIA
     Dosage: 10 MG/DAILY PO
     Route: 048
     Dates: start: 20090424, end: 20090722
  2. MG OXIDE [Concomitant]
  3. ALENDRONATE SODIUM [Concomitant]
  4. AZELINIDIPINE [Concomitant]
  5. FAMOTIDINE [Concomitant]
  6. GUANABENZ ACETATE [Concomitant]
  7. INSULIN ASPART [Concomitant]
  8. LOSARTAN POTASSIUM [Concomitant]
  9. METFORMIN HCL [Concomitant]
  10. PREDNISOLONE [Concomitant]

REACTIONS (3)
  - FRACTURED SACRUM [None]
  - GAIT DISTURBANCE [None]
  - WHEELCHAIR USER [None]
